FAERS Safety Report 9735574 (Version 3)
Quarter: 2015Q3

REPORT INFORMATION
  Report Type: Spontaneous
  Country: US (occurrence: US)
  Receive Date: 20131206
  Receipt Date: 20150804
  Transmission Date: 20151125
  Serious: No
  Sender: FDA-Public Use
  Company Number: US-GILEAD-2009-0023544

PATIENT
  Age: 60 Year
  Sex: Female
  Weight: 50.8 kg

DRUGS (13)
  1. LETAIRIS [Suspect]
     Active Substance: AMBRISENTAN
     Route: 048
     Dates: start: 20090401, end: 20090514
  2. TRENTAL [Concomitant]
     Active Substance: PENTOXIFYLLINE
  3. NEXIUM [Concomitant]
     Active Substance: ESOMEPRAZOLE MAGNESIUM
  4. WARFARIN [Concomitant]
     Active Substance: WARFARIN
  5. ALDACTONE [Concomitant]
     Active Substance: SPIRONOLACTONE
  6. TYLENOL [Concomitant]
     Active Substance: ACETAMINOPHEN
  7. NIACIN. [Concomitant]
     Active Substance: NIACIN
  8. LISINOPRIL. [Concomitant]
     Active Substance: LISINOPRIL
  9. NORVASC [Concomitant]
     Active Substance: AMLODIPINE BESYLATE
  10. POTASSIUM CHLORIDE. [Concomitant]
     Active Substance: POTASSIUM CHLORIDE
  11. LETAIRIS [Suspect]
     Active Substance: AMBRISENTAN
     Indication: PULMONARY ARTERIAL HYPERTENSION
     Route: 048
     Dates: start: 20090515, end: 20090810
  12. LASIX [Concomitant]
     Active Substance: FUROSEMIDE
  13. TRAMADOL. [Concomitant]
     Active Substance: TRAMADOL

REACTIONS (4)
  - Alanine aminotransferase increased [Recovering/Resolving]
  - Blood bilirubin increased [Recovering/Resolving]
  - Aspartate aminotransferase increased [Recovering/Resolving]
  - Blood alkaline phosphatase increased [Recovering/Resolving]

NARRATIVE: CASE EVENT DATE: 20090728
